FAERS Safety Report 8884889 (Version 1)
Quarter: 2012Q4

REPORT INFORMATION
  Report Type: 
  Country: US (occurrence: US)
  Receive Date: 20121102
  Receipt Date: 20121102
  Transmission Date: 20130627
  Serious: No
  Sender: FDA-Public Use
  Company Number: US-PFIZER INC-2012273323

PATIENT
  Sex: Female
  Weight: 53.06 kg

DRUGS (1)
  1. LYRICA [Suspect]
     Indication: FIBROMYALGIA
     Dosage: UNK
     Dates: start: 20121012

REACTIONS (3)
  - Flatulence [Unknown]
  - Abdominal distension [Unknown]
  - Weight increased [Unknown]
